FAERS Safety Report 16691860 (Version 1)
Quarter: 2019Q3

REPORT INFORMATION
  Report Type: Spontaneous
  Country: FR (occurrence: FR)
  Receive Date: 20190812
  Receipt Date: 20190812
  Transmission Date: 20191004
  Serious: Yes (Life-Threatening)
  Sender: FDA-Public Use
  Company Number: FR-ASTRAZENECA-2019SF12992

PATIENT
  Age: 64 Year
  Sex: Female
  Weight: 67 kg

DRUGS (15)
  1. INEXIUM [Suspect]
     Active Substance: ESOMEPRAZOLE
     Indication: SYSTEMIC SCLERODERMA
     Route: 048
     Dates: end: 20190723
  2. MOTILIUM [Concomitant]
     Active Substance: DOMPERIDONE
  3. LAROXYL [Concomitant]
     Active Substance: AMITRIPTYLINE HYDROCHLORIDE
  4. VOGALENE [Concomitant]
     Active Substance: METOPIMAZINE
  5. CREON [Concomitant]
     Active Substance: PANCRELIPASE AMYLASE\PANCRELIPASE LIPASE\PANCRELIPASE PROTEASE
     Dosage: 12000 U
  6. DIFFU K [Concomitant]
     Active Substance: POTASSIUM CHLORIDE
  7. MESTINON [Concomitant]
     Active Substance: PYRIDOSTIGMINE BROMIDE
  8. PARACETAMOL [Concomitant]
     Active Substance: ACETAMINOPHEN
  9. UVEDOSE [Concomitant]
     Active Substance: CHOLECALCIFEROL
     Dosage: 100 000 UI
  10. ISOPTINE [Concomitant]
     Active Substance: VERAPAMIL HYDROCHLORIDE
  11. LYRICA [Concomitant]
     Active Substance: PREGABALIN
  12. CRESTOR [Concomitant]
     Active Substance: ROSUVASTATIN CALCIUM
  13. XARELTO [Concomitant]
     Active Substance: RIVAROXABAN
  14. KARDEGIC [Concomitant]
     Active Substance: ASPIRIN DL-LYSINE
  15. PRIMPERAN [Concomitant]
     Active Substance: METOCLOPRAMIDE HYDROCHLORIDE

REACTIONS (4)
  - Hypocalcaemia [Recovering/Resolving]
  - Hypokalaemia [Recovering/Resolving]
  - Arrhythmia [Recovered/Resolved]
  - Hypomagnesaemia [Recovering/Resolving]

NARRATIVE: CASE EVENT DATE: 201805
